FAERS Safety Report 10571211 (Version 1)
Quarter: 2014Q4

REPORT INFORMATION
  Report Type: Spontaneous
  Country: CN (occurrence: CN)
  Receive Date: 20141107
  Receipt Date: 20141107
  Transmission Date: 20150529
  Serious: Yes (Death, Other)
  Sender: FDA-Public Use
  Company Number: CN-ELI_LILLY_AND_COMPANY-CN201410012329

PATIENT
  Age: 79 Year
  Sex: Male

DRUGS (5)
  1. CEFOPERAZONE SODIUM [Suspect]
     Active Substance: CEFOPERAZONE SODIUM
     Indication: HYPERPYREXIA
     Dosage: UNK, UNKNOWN
     Route: 065
     Dates: start: 20141008
  2. TOPAMAX [Concomitant]
     Active Substance: TOPIRAMATE
     Indication: EPILEPSY
     Dosage: UNK, UNKNOWN
     Route: 065
  3. CARBAMAZEPINE. [Concomitant]
     Active Substance: CARBAMAZEPINE
     Indication: EPILEPSY
     Dosage: UNK, QD
     Route: 065
  4. SULBACTAM SODIUM [Suspect]
     Active Substance: SULBACTAM SODIUM
     Indication: HYPERPYREXIA
     Dosage: UNK, UNKNOWN
     Route: 065
     Dates: start: 20141008
  5. VANCOCIN [Suspect]
     Active Substance: VANCOMYCIN HYDROCHLORIDE
     Indication: HYPERPYREXIA
     Dosage: UNK, UNKNOWN
     Route: 065
     Dates: start: 20141008

REACTIONS (7)
  - Pupils unequal [Unknown]
  - Pyrexia [Unknown]
  - Tremor [Unknown]
  - Epilepsy [Unknown]
  - Fatigue [Unknown]
  - Epistaxis [Unknown]
  - Death [Fatal]

NARRATIVE: CASE EVENT DATE: 20141008
